FAERS Safety Report 4613900-4 (Version None)
Quarter: 2005Q1

REPORT INFORMATION
  Report Type: 
  Country: None (occurrence: None)
  Receive Date: 20050316
  Receipt Date: 20050303
  Transmission Date: 20050727
  Serious: Yes (Life-Threatening, Other)
  Sender: FDA-Public Use
  Company Number: HQWYE856804MAR05

PATIENT
  Age: 47 Year
  Sex: Male

DRUGS (4)
  1. INDERAL [Suspect]
     Indication: HYPERTHYROIDISM
     Dosage: 10 MG 3X PER 1 DAY, ORAL
     Route: 048
     Dates: start: 20041022, end: 20041213
  2. CARBIMAZOLE                         (CARBIMAZOLE) [Concomitant]
  3. HYDROCORTISONE [Concomitant]
  4. FLUDROCORTISONE                       (FLUDROCORTISONE) [Concomitant]

REACTIONS (1)
  - ACUTE GENERALISED EXANTHEMATOUS PUSTULOSIS [None]
